FAERS Safety Report 12115480 (Version 4)
Quarter: 2016Q2

REPORT INFORMATION
  Report Type: Spontaneous
  Country: US (occurrence: US)
  Receive Date: 20160225
  Receipt Date: 20160408
  Transmission Date: 20160815
  Serious: Yes (Death, Disabling, Other)
  Sender: FDA-Public Use
  Company Number: US-BAYER-2016-035727

PATIENT
  Sex: Female

DRUGS (1)
  1. CIPRO [Suspect]
     Active Substance: CIPROFLOXACIN HYDROCHLORIDE
     Indication: URINARY TRACT INFECTION
     Dosage: UNK

REACTIONS (7)
  - Cerebrovascular accident [Fatal]
  - Mobility decreased [None]
  - Drug hypersensitivity [None]
  - Adverse drug reaction [Fatal]
  - Petechiae [None]
  - Immune thrombocytopenic purpura [None]
  - Platelet count decreased [None]
